FAERS Safety Report 7880767-0 (Version None)
Quarter: 2011Q4

REPORT INFORMATION
  Report Type: 
  Country: None (occurrence: None)
  Receive Date: 20111101
  Receipt Date: 20111017
  Transmission Date: 20120403
  Serious: Yes (Other)
  Sender: FDA-Public Use
  Company Number: BR-WATSON-2011-17469

PATIENT
  Age: 18 Year
  Sex: Female

DRUGS (2)
  1. PREDNISONE [Suspect]
     Indication: PROTEIN-LOSING GASTROENTEROPATHY
     Dosage: 5 MG, DAILY
     Route: 065
  2. AZATHIOPRINE [Suspect]
     Indication: PROTEIN-LOSING GASTROENTEROPATHY
     Dosage: 50 MG DAILY, INCREASED TO 100MG/DAY
     Route: 065
     Dates: start: 20090301

REACTIONS (1)
  - PROTEINURIA [None]
